FAERS Safety Report 6729258-0 (Version None)
Quarter: 2010Q2

REPORT INFORMATION
  Report Type: 
  Country: None (occurrence: None)
  Receive Date: 20100517
  Receipt Date: 20100430
  Transmission Date: 20101027
  Serious: No
  Sender: FDA-Public Use
  Company Number: US-ABBOTT-10P-163-0641716-00

PATIENT
  Sex: Female

DRUGS (7)
  1. SIMCOR [Suspect]
     Indication: DRUG USE FOR UNKNOWN INDICATION
     Dosage: 500/20MG AT BED TIME
     Dates: start: 20100429
  2. ALEVE (CAPLET) [Concomitant]
     Indication: DRUG USE FOR UNKNOWN INDICATION
  3. ASPIRIN [Concomitant]
     Indication: DRUG USE FOR UNKNOWN INDICATION
  4. AVALIDE [Concomitant]
     Indication: DRUG USE FOR UNKNOWN INDICATION
  5. M.V.I. [Concomitant]
     Indication: DRUG USE FOR UNKNOWN INDICATION
  6. EYE VITAMIN [Concomitant]
     Indication: DRUG USE FOR UNKNOWN INDICATION
  7. GLUCOPHAGE [Concomitant]
     Indication: DRUG USE FOR UNKNOWN INDICATION
     Dosage: THE DOCTOR RECENTLY TRIPLED DOSE

REACTIONS (2)
  - FLUSHING [None]
  - PRURITUS [None]
